FAERS Safety Report 4927765-4 (Version None)
Quarter: 2006Q1

REPORT INFORMATION
  Report Type: 
  Country: None (occurrence: None)
  Receive Date: 20060228
  Receipt Date: 20050713
  Transmission Date: 20060701
  Serious: No
  Sender: FDA-Public Use
  Company Number: US-GLAXOSMITHKLINE-A0566121A

PATIENT
  Sex: Male

DRUGS (3)
  1. ZIAGEN [Suspect]
     Indication: HIV INFECTION
     Route: 048
  2. MULTIPLE MEDICATIONS [Concomitant]
  3. ALLEGRA [Concomitant]

REACTIONS (1)
  - MEDICATION RESIDUE [None]
